FAERS Safety Report 5606678-9 (Version None)
Quarter: 2008Q1

REPORT INFORMATION
  Report Type: 
  Country: None (occurrence: None)
  Receive Date: 20080129
  Receipt Date: 20061205
  Transmission Date: 20080703
  Serious: No
  Sender: FDA-Public Use
  Company Number: A0630448A

PATIENT
  Age: 21 Year
  Sex: Female

DRUGS (8)
  1. COMBIVIR [Suspect]
     Indication: PROPHYLAXIS
     Route: 048
     Dates: start: 20061121
  2. PROMETRIUM [Concomitant]
  3. ANTITHYROID MEDICATION [Concomitant]
  4. ADVAIR DISKUS 100/50 [Concomitant]
  5. SPIRONOLACTONE [Concomitant]
  6. GLUCOPHAGE [Concomitant]
  7. ATROVENT [Concomitant]
  8. NOVOLOG [Concomitant]
     Route: 055

REACTIONS (4)
  - FATIGUE [None]
  - MALAISE [None]
  - MENTAL IMPAIRMENT [None]
  - WEIGHT DECREASED [None]
